FAERS Safety Report 12304283 (Version 1)
Quarter: 2016Q2

REPORT INFORMATION
  Report Type: Spontaneous
  Country: US (occurrence: None)
  Receive Date: 20160425
  Receipt Date: 20160425
  Transmission Date: 20160815
  Serious: Yes (Other)
  Sender: FDA-Public Use
  Company Number: None

PATIENT
  Age: 31 Year
  Sex: Female
  Weight: 90.72 kg

DRUGS (1)
  1. CERTAIN DRI CLARION BRANDS [Suspect]
     Active Substance: ALUMINUM CHLOROHYDRATE\ALUMINUM ZIRCONIUM TETRACHLOROHYDREX GLY
     Indication: HYPERHIDROSIS
     Dosage: 2 OUNCE(S) AT BEDTIME APPLIED TO A SURFACE, USUALLY THE SKIN
     Route: 061
     Dates: start: 20150606, end: 20160422

REACTIONS (6)
  - Application site pruritus [None]
  - Paraesthesia [None]
  - Hyperaesthesia [None]
  - Application site rash [None]
  - Rash erythematous [None]
  - Application site pain [None]

NARRATIVE: CASE EVENT DATE: 20160422
